FAERS Safety Report 14651596 (Version 1)
Quarter: 2018Q1

REPORT INFORMATION
  Report Type: Report from Study
  Country: GB (occurrence: GB)
  Receive Date: 20180317
  Receipt Date: 20180317
  Transmission Date: 20180509
  Serious: Yes (Hospitalization, Disabling)
  Sender: FDA-Public Use
  Company Number: GB-ROCHE-1907077

PATIENT
  Sex: Female
  Weight: 91.5 kg

DRUGS (1)
  1. ROACTEMRA [Suspect]
     Active Substance: TOCILIZUMAB
     Indication: RHEUMATOID ARTHRITIS
     Route: 058
     Dates: start: 20160920

REACTIONS (3)
  - Cellulitis [Unknown]
  - Feeling abnormal [Unknown]
  - Oral infection [Unknown]

NARRATIVE: CASE EVENT DATE: 20170309
